FAERS Safety Report 19408455 (Version 2)
Quarter: 2021Q2

REPORT INFORMATION
  Report Type: Spontaneous
  Country: GB (occurrence: GB)
  Receive Date: 20210612
  Receipt Date: 20210621
  Transmission Date: 20210717
  Serious: Yes (Hospitalization, Other)
  Sender: FDA-Public Use
  Company Number: GB-AMGEN-GBRSP2021088391

PATIENT
  Age: 66 Year
  Sex: Female
  Weight: 120 kg

DRUGS (5)
  1. CLIOQUINOL [Concomitant]
     Active Substance: CLIOQUINOL
     Dosage: UNK
     Dates: start: 20180829
  2. DOXYCYCLINE. [Concomitant]
     Active Substance: DOXYCYCLINE
     Indication: BREAST CANCER
     Dosage: UNK
     Route: 048
     Dates: start: 20180829
  3. AMGEVITA [Suspect]
     Active Substance: ADALIMUMAB
     Indication: PSORIASIS
     Dosage: 40 MILLIGRAM, Q2WK
     Route: 065
     Dates: start: 20190729, end: 20200201
  4. SOFRADEX [DEXAMETHASONE SODIUM METASULFOBENZOATE;FRAMYCETIN SULFATE;GR [Concomitant]
     Dosage: UNK
     Dates: start: 20180829
  5. RIFAMPICIN [Concomitant]
     Active Substance: RIFAMPIN
     Dosage: UNK
     Dates: start: 20180821

REACTIONS (5)
  - Wound dehiscence [Unknown]
  - Fall [Unknown]
  - Anaemia postoperative [Unknown]
  - Breast cancer recurrent [Unknown]
  - Hypercalcaemia [Recovered/Resolved]

NARRATIVE: CASE EVENT DATE: 202009
